FAERS Safety Report 18226959 (Version 1)
Quarter: 2020Q3

REPORT INFORMATION
  Report Type: Spontaneous
  Country: CA (occurrence: CA)
  Receive Date: 20200903
  Receipt Date: 20200903
  Transmission Date: 20201103
  Serious: Yes (Other)
  Sender: FDA-Public Use
  Company Number: CA-ACCORD-198697

PATIENT
  Age: 65 Year
  Sex: Female

DRUGS (14)
  1. MYCOPHENOLIC ACID. [Suspect]
     Active Substance: MYCOPHENOLIC ACID
     Indication: PEMPHIGUS
     Dosage: 2 EVERY 1 DAYS
     Route: 048
  2. PREDNISONE. [Suspect]
     Active Substance: PREDNISONE
     Indication: PEMPHIGUS
     Dosage: 1 EVERY 24 HOURS
  3. NAPROXEN. [Concomitant]
     Active Substance: NAPROXEN
     Indication: PRODUCT USED FOR UNKNOWN INDICATION
  4. ALLEGRA [Concomitant]
     Active Substance: FEXOFENADINE HYDROCHLORIDE
     Indication: PRODUCT USED FOR UNKNOWN INDICATION
  5. BETAMETHASONE. [Concomitant]
     Active Substance: BETAMETHASONE
     Indication: PRODUCT USED FOR UNKNOWN INDICATION
  6. VAGIFEM [Concomitant]
     Active Substance: ESTRADIOL
     Indication: PRODUCT USED FOR UNKNOWN INDICATION
     Route: 067
  7. PREDNISONE. [Suspect]
     Active Substance: PREDNISONE
     Indication: PEMPHIGUS
     Dosage: 1 EVERY 24 HOURS
  8. MYCOPHENOLIC ACID. [Suspect]
     Active Substance: MYCOPHENOLIC ACID
     Indication: PEMPHIGUS
     Dosage: 2 EVERY 1 DAYS
     Route: 048
  9. LIDOCAINE. [Concomitant]
     Active Substance: LIDOCAINE
     Indication: PRODUCT USED FOR UNKNOWN INDICATION
     Route: 061
  10. CLOBETASOL [Concomitant]
     Active Substance: CLOBETASOL
     Indication: PRODUCT USED FOR UNKNOWN INDICATION
  11. PREDNISONE. [Suspect]
     Active Substance: PREDNISONE
     Indication: PEMPHIGUS
     Dosage: 2 EVERY 1 DAYS
  12. CIPRALEX [Concomitant]
     Active Substance: ESCITALOPRAM OXALATE
     Indication: PRODUCT USED FOR UNKNOWN INDICATION
  13. TRIAMCINOLONE [Concomitant]
     Active Substance: TRIAMCINOLONE
     Indication: PRODUCT USED FOR UNKNOWN INDICATION
     Route: 014
  14. RISEDRONIC ACID [Concomitant]
     Active Substance: RISEDRONIC ACID
     Indication: PRODUCT USED FOR UNKNOWN INDICATION

REACTIONS (4)
  - Drug ineffective [Unknown]
  - Pemphigus [Not Recovered/Not Resolved]
  - Dysphagia [Not Recovered/Not Resolved]
  - Choking sensation [Not Recovered/Not Resolved]
